FAERS Safety Report 7839089-6 (Version None)
Quarter: 2011Q4

REPORT INFORMATION
  Report Type: 
  Country: None (occurrence: None)
  Receive Date: 20111024
  Receipt Date: 20111011
  Transmission Date: 20120403
  Serious: Yes (Hospitalization)
  Sender: FDA-Public Use
  Company Number: KR-MYLANLABS-2011S1021602

PATIENT
  Age: 22 Year
  Sex: Male

DRUGS (1)
  1. VALPROIC ACID [Suspect]
     Indication: INTENTIONAL OVERDOSE
     Dosage: APPROXIMATELY 50G

REACTIONS (5)
  - DEPRESSED LEVEL OF CONSCIOUSNESS [None]
  - BRAIN OEDEMA [None]
  - INTENTIONAL OVERDOSE [None]
  - HYPERAMMONAEMIA [None]
  - SUBARACHNOID HAEMORRHAGE [None]
